FAERS Safety Report 4379190-5 (Version None)
Quarter: 2004Q2

REPORT INFORMATION
  Report Type: 
  Country: None (occurrence: None)
  Receive Date: 20040610
  Receipt Date: 20040528
  Transmission Date: 20050107
  Serious: Yes (Hospitalization, Other)
  Sender: FDA-Public Use
  Company Number: HQWYE260404JUN04

PATIENT
  Sex: Female

DRUGS (6)
  1. PREMPRO [Suspect]
     Dosage: ORAL
     Route: 048
  2. CURRETAB [Suspect]
  3. CYCRIN [Suspect]
     Dosage: ORAL
     Route: 048
  4. MEDROXYPROGESTERONE [Suspect]
  5. PREMARIN [Suspect]
     Dosage: ORAL
     Route: 048
  6. PROVERA [Suspect]

REACTIONS (1)
  - BREAST CANCER FEMALE [None]
